FAERS Safety Report 7245293-0 (Version None)
Quarter: 2011Q1

REPORT INFORMATION
  Report Type: 
  Country: None (occurrence: None)
  Receive Date: 20110126
  Receipt Date: 20110114
  Transmission Date: 20110831
  Serious: Yes (Hospitalization)
  Sender: FDA-Public Use
  Company Number: JP-TYCO HEALTHCARE/MALLINCKRODT-T201100075

PATIENT
  Sex: Male
  Weight: 52 kg

DRUGS (16)
  1. FLAVITAN [Concomitant]
     Dosage: 10 MG, TID
     Dates: start: 20101020
  2. CHLORHEXIDINE GLUCONATE [Concomitant]
     Dosage: 3 ML S.I.D
     Dates: start: 20101213
  3. METHADONE [Suspect]
     Dosage: 30 MG, TID
     Route: 048
     Dates: start: 20101221, end: 20110112
  4. PYDOXAL [Concomitant]
     Dosage: 10 MG, TID
     Dates: start: 20101020
  5. CINAL                              /00257901/ [Concomitant]
     Dosage: 3 TAB/DAY
     Dates: start: 20101020
  6. METHADONE [Suspect]
     Indication: CANCER PAIN
     Dosage: 15 MG, TID
     Route: 048
     Dates: start: 20101130, end: 20101203
  7. METHADONE [Suspect]
     Dosage: 30 MG, TID
     Route: 048
     Dates: start: 20101208, end: 20101220
  8. OXYCODONE HCL [Concomitant]
     Dosage: 15 MG, PRN
     Dates: start: 20101208
  9. HYPEN [Concomitant]
     Dosage: 200 MG, BID
     Dates: start: 20101202
  10. HIRUDOID                           /00723701/ [Concomitant]
     Dosage: OPTIMAL DOSE AS NEEDED
     Dates: start: 20101210
  11. MINOCYCLINE HYDROCHLORIDE [Concomitant]
     Dosage: OPTIMAL DOSE AS NEEDED
     Dates: start: 20101025
  12. GENTACIN [Concomitant]
     Dosage: OPTIMAL DOSE S.I.D
     Dates: start: 20101221
  13. METHADONE [Suspect]
     Dosage: 20 MG, BID
     Route: 048
     Dates: start: 20101204, end: 20101207
  14. MAGMITT [Concomitant]
     Dosage: 500 MG, PRN
     Dates: start: 20101102
  15. SENNARIDE [Concomitant]
     Dosage: 24 MG, PRN
     Dates: start: 20101225
  16. MUCOSTA [Concomitant]
     Dosage: 100 MG, BID
     Dates: start: 20101102

REACTIONS (1)
  - CACHEXIA [None]
